FAERS Safety Report 9186287 (Version 1)
Quarter: 2013Q1

REPORT INFORMATION
  Report Type: Spontaneous
  Country: SE (occurrence: SE)
  Receive Date: 20130325
  Receipt Date: 20130325
  Transmission Date: 20140127
  Serious: Yes (Death, Other)
  Sender: FDA-Public Use
  Company Number: SE-GLAXOSMITHKLINE-B0876935A

PATIENT
  Age: 87 Year
  Sex: Male

DRUGS (10)
  1. ARIXTRA [Suspect]
     Indication: ACUTE MYOCARDIAL INFARCTION
     Dosage: 2.5MG PER DAY
     Route: 058
     Dates: start: 20121207, end: 20121208
  2. BRILIQUE [Suspect]
     Indication: ACUTE MYOCARDIAL INFARCTION
     Dosage: 180MG PER DAY
     Route: 048
     Dates: start: 20121207, end: 20121208
  3. TROMBYL [Suspect]
     Indication: ACUTE MYOCARDIAL INFARCTION
     Dosage: 75MG PER DAY
     Route: 048
     Dates: start: 20110131, end: 20121208
  4. PAMOL [Concomitant]
  5. BISOPROLOL [Concomitant]
  6. RAMIPRIL [Concomitant]
  7. FURIX [Concomitant]
     Route: 065
  8. MORFIN [Concomitant]
  9. DAONIL [Concomitant]
     Route: 065
  10. SPIRONOLAKTON [Concomitant]
     Route: 065

REACTIONS (1)
  - Gastrointestinal haemorrhage [Fatal]
